FAERS Safety Report 4457984-5 (Version None)
Quarter: 2004Q3

REPORT INFORMATION
  Report Type: 
  Country: None (occurrence: None)
  Receive Date: 20040922
  Receipt Date: 20040902
  Transmission Date: 20050211
  Serious: Yes (Death, Hospitalization)
  Sender: FDA-Public Use
  Company Number: US_0409105298

PATIENT
  Age: 60 Year
  Sex: Male

DRUGS (1)
  1. GEMZAR [Suspect]
     Indication: BLADDER CANCER

REACTIONS (13)
  - ANAEMIA [None]
  - COLLAPSE OF LUNG [None]
  - DYSPNOEA EXERTIONAL [None]
  - FATIGUE [None]
  - HYPOREFLEXIA [None]
  - PAIN [None]
  - PLEURAL EFFUSION [None]
  - POLYURIA [None]
  - PROSTATIC DISORDER [None]
  - RESPIRATORY FAILURE [None]
  - URINARY TRACT INFECTION [None]
  - WEIGHT DECREASED [None]
  - WHITE BLOOD CELL COUNT INCREASED [None]
